FAERS Safety Report 16151322 (Version 1)
Quarter: 2019Q2

REPORT INFORMATION
  Report Type: Spontaneous
  Country: US (occurrence: US)
  Receive Date: 20190402
  Receipt Date: 20190402
  Transmission Date: 20190711
  Serious: Yes (Other)
  Sender: FDA-Public Use
  Company Number: None

PATIENT
  Age: 36 Year
  Sex: Female

DRUGS (2)
  1. BUPRENORPHINE NALOXONE TABLETS [Suspect]
     Active Substance: BUPRENORPHINE HYDROCHLORIDE\NALOXONE HYDROCHLORIDE
     Dates: start: 20190304, end: 20190401
  2. BUPRENORPHINE NALOXONE TABLETS [Suspect]
     Active Substance: BUPRENORPHINE HYDROCHLORIDE\NALOXONE HYDROCHLORIDE
     Indication: DRUG DEPENDENCE
     Route: 048
     Dates: start: 20190304, end: 20190401

REACTIONS (5)
  - Product solubility abnormal [None]
  - Therapeutic product effect incomplete [None]
  - Withdrawal syndrome [None]
  - Product dosage form issue [None]
  - Drug dependence [None]

NARRATIVE: CASE EVENT DATE: 20190401
